FAERS Safety Report 18631218 (Version 1)
Quarter: 2020Q4

REPORT INFORMATION
  Report Type: Spontaneous
  Country: US (occurrence: US)
  Receive Date: 20201217
  Receipt Date: 20201217
  Transmission Date: 20210114
  Serious: No
  Sender: FDA-Public Use
  Company Number: US-B.BRAUN MEDICAL INC.-2103156

PATIENT
  Age: 60 Year
  Sex: Male
  Weight: 91.3 kg

DRUGS (1)
  1. 0.9% SODIUM CHLORIDE INJECTION USP 0264-1800-31 0264-1800-32 (NDA 0174 [Suspect]
     Active Substance: SODIUM CHLORIDE
     Route: 042
     Dates: start: 20201106

REACTIONS (2)
  - Chills [None]
  - Pyrexia [None]

NARRATIVE: CASE EVENT DATE: 20201106
